FAERS Safety Report 19952955 (Version 1)
Quarter: 2021Q4

REPORT INFORMATION
  Report Type: Spontaneous
  Country: US (occurrence: US)
  Receive Date: 20211010
  Receipt Date: 20211010
  Transmission Date: 20220303
  Serious: Yes (Disabling)
  Sender: FDA-Public Use
  Company Number: None

PATIENT
  Age: 80 Year
  Sex: Female
  Weight: 54.43 kg

DRUGS (7)
  1. WIXELA INHUB [Suspect]
     Active Substance: FLUTICASONE PROPIONATE\SALMETEROL XINAFOATE
     Indication: Asthma
     Dosage: ?          QUANTITY:1 PUFF;
     Route: 048
     Dates: start: 20210630, end: 20210914
  2. combivent resplmat [Concomitant]
  3. LEVOTHYROXINE [Concomitant]
     Active Substance: LEVOTHYROXINE
  4. larartan [Concomitant]
  5. bayer low dose aspirin [Concomitant]
  6. midnight sleep aid [Concomitant]
  7. VITAMIN D3 [Concomitant]
     Active Substance: CHOLECALCIFEROL

REACTIONS (4)
  - Product substitution issue [None]
  - Wheezing [None]
  - Product physical issue [None]
  - Device malfunction [None]

NARRATIVE: CASE EVENT DATE: 20210630
